FAERS Safety Report 4563082-2 (Version None)
Quarter: 2005Q1

REPORT INFORMATION
  Report Type: 
  Country: None (occurrence: None)
  Receive Date: 20050127
  Receipt Date: 20050113
  Transmission Date: 20050727
  Serious: Yes (Hospitalization, Other)
  Sender: FDA-Public Use
  Company Number: US-JNJFOC-20040706841

PATIENT
  Sex: Female

DRUGS (15)
  1. REMICADE [Suspect]
     Indication: RHEUMATOID ARTHRITIS
     Route: 042
  2. CYCLOPHOSPHAMIDE [Suspect]
     Indication: RHEUMATOID ARTHRITIS
  3. PREDNISONE [Concomitant]
     Indication: RHEUMATOID ARTHRITIS
  4. METHOTREXATE [Concomitant]
     Indication: RHEUMATOID ARTHRITIS
  5. DOCUSATE [Concomitant]
  6. LANSOPRAZOLE [Concomitant]
  7. ASPIRIN [Concomitant]
  8. ATENOLOL [Concomitant]
  9. AZATHIOPRINE [Concomitant]
  10. CONJUGATED ESTROGEN/MEDROYXPROGESTERON [Concomitant]
  11. CONJUGATED ESTROGEN/MEDROYXPROGESTERON [Concomitant]
  12. OXYCODONE HCL [Concomitant]
  13. ACETAMINOPHEN [Concomitant]
  14. SERTRALINE HCL [Concomitant]
  15. TEMAZEPAM [Concomitant]

REACTIONS (40)
  - ACTINIC KERATOSIS [None]
  - ANXIETY [None]
  - BACK PAIN [None]
  - CANDIDIASIS [None]
  - CATARACT [None]
  - CHOLECYSTITIS [None]
  - CONDITION AGGRAVATED [None]
  - DECREASED APPETITE [None]
  - DERMATITIS [None]
  - DIPHTHERIA [None]
  - DRUG HYPERSENSITIVITY [None]
  - DRUG INEFFECTIVE [None]
  - FOLLICULITIS [None]
  - HERPES SIMPLEX [None]
  - HERPES ZOSTER [None]
  - IMMUNOSUPPRESSION [None]
  - IMPETIGO [None]
  - KYPHOSIS [None]
  - LENTIGO [None]
  - LENTIGO MALIGNA STAGE UNSPECIFIED [None]
  - LEUKOCYTOCLASTIC VASCULITIS [None]
  - NAUSEA [None]
  - NON-CARDIAC CHEST PAIN [None]
  - OEDEMA PERIPHERAL [None]
  - OSTEOPOROSIS [None]
  - PERICARDIAL EFFUSION [None]
  - PERICARDITIS [None]
  - POST HERPETIC NEURALGIA [None]
  - PRURITUS [None]
  - PULMONARY EMBOLISM [None]
  - RHEUMATOID ARTHRITIS [None]
  - RHEUMATOID NODULE [None]
  - SKIN FISSURES [None]
  - SPINAL COMPRESSION FRACTURE [None]
  - STAPHYLOCOCCAL INFECTION [None]
  - TROPONIN INCREASED [None]
  - UPPER RESPIRATORY TRACT INFECTION [None]
  - VASCULITIS [None]
  - WHITE BLOOD CELL COUNT DECREASED [None]
  - XEROSIS [None]
